FAERS Safety Report 16997234 (Version 1)
Quarter: 2019Q4

REPORT INFORMATION
  Report Type: Spontaneous
  Country: US (occurrence: US)
  Receive Date: 20190924
  Receipt Date: 20190924
  Transmission Date: 20200122
  Serious: Yes (Hospitalization)
  Sender: FDA-Public Use
  Company Number: None

PATIENT
  Age: 67 Year
  Sex: Female

DRUGS (10)
  1. AMLODIPINE [Concomitant]
     Active Substance: AMLODIPINE BESYLATE
  2. PROCHLORPER [Concomitant]
  3. IBRANCE [Suspect]
     Active Substance: PALBOCICLIB
     Indication: BREAST CANCER FEMALE
     Dosage: ?          OTHER FREQUENCY:QDX21 DYS Q28;?
     Route: 048
     Dates: start: 20160707
  4. FEMARA [Concomitant]
     Active Substance: LETROZOLE
  5. LIDOCAINE. [Concomitant]
     Active Substance: LIDOCAINE
  6. MORPHINE SUL [Concomitant]
     Active Substance: MORPHINE SULFATE
  7. ZOLPIDEM [Concomitant]
     Active Substance: ZOLPIDEM TARTRATE
  8. LETROZOLE. [Concomitant]
     Active Substance: LETROZOLE
  9. HYDROCO/APAP [Concomitant]
     Active Substance: ACETAMINOPHEN\HYDROCODONE
  10. FLUOXETINE [Concomitant]
     Active Substance: FLUOXETINE HYDROCHLORIDE

REACTIONS (1)
  - Food poisoning [None]

NARRATIVE: CASE EVENT DATE: 20190914
